FAERS Safety Report 20957094 (Version 1)
Quarter: 2022Q2

REPORT INFORMATION
  Report Type: Report from Study
  Country: US (occurrence: US)
  Receive Date: 20220614
  Receipt Date: 20220614
  Transmission Date: 20220721
  Serious: Yes (Other)
  Sender: FDA-Public Use
  Company Number: US-EXELIXIS-CABO-22052796

PATIENT
  Age: 66 Year
  Sex: Male

DRUGS (1)
  1. CABOMETYX [Suspect]
     Active Substance: CABOZANTINIB S-MALATE
     Indication: Product used for unknown indication
     Dosage: 60 MG, BID
     Route: 048
     Dates: start: 202205

REACTIONS (3)
  - Sinus disorder [Unknown]
  - Cough [Unknown]
  - Overdose [Unknown]

NARRATIVE: CASE EVENT DATE: 20220501
